FAERS Safety Report 7794176-6 (Version None)
Quarter: 2011Q4

REPORT INFORMATION
  Report Type: 
  Country: None (occurrence: None)
  Receive Date: 20111004
  Receipt Date: 20110926
  Transmission Date: 20120403
  Serious: Yes (Death, Hospitalization)
  Sender: FDA-Public Use
  Company Number: PA-TEVA-303173ISR

PATIENT
  Age: 65 Year
  Sex: Male

DRUGS (4)
  1. PREDNISONE [Suspect]
     Dosage: .25 DOSAGE FORMS;
  2. METHYLPREDNISOLONE [Suspect]
     Route: 042
  3. PREDNISONE [Suspect]
     Dosage: .5 DOSAGE FORMS;
  4. PREDNISONE [Suspect]
     Indication: ARTHRALGIA
     Dosage: 1 DOSAGE FORMS;

REACTIONS (1)
  - TOXIC EPIDERMAL NECROLYSIS [None]
